FAERS Safety Report 24016090 (Version 1)
Quarter: 2024Q2

REPORT INFORMATION
  Report Type: Report from Study
  Country: CA (occurrence: CA)
  Receive Date: 20240626
  Receipt Date: 20240626
  Transmission Date: 20240716
  Serious: Yes (Other)
  Sender: FDA-Public Use
  Company Number: CA-ABBVIE-5810143

PATIENT
  Age: 71 Year
  Sex: Female

DRUGS (1)
  1. SKYRIZI [Suspect]
     Active Substance: RISANKIZUMAB-RZAA
     Indication: Crohn^s disease
     Route: 058
     Dates: start: 20230404

REACTIONS (15)
  - Sepsis [Unknown]
  - Ligament rupture [Unknown]
  - Asthenia [Unknown]
  - Constipation [Unknown]
  - Muscle spasms [Unknown]
  - Hot flush [Unknown]
  - Nasal disorder [Unknown]
  - Visual impairment [Not Recovered/Not Resolved]
  - Rhinitis [Unknown]
  - Haemorrhoids [Unknown]
  - Oral herpes [Unknown]
  - Nausea [Unknown]
  - Feeling abnormal [Unknown]
  - Arthralgia [Unknown]
  - Abdominal pain [Unknown]

NARRATIVE: CASE EVENT DATE: 20230801
